FAERS Safety Report 10667651 (Version 1)
Quarter: 2014Q4

REPORT INFORMATION
  Report Type: Spontaneous
  Country: US (occurrence: US)
  Receive Date: 20141222
  Receipt Date: 20141222
  Transmission Date: 20150529
  Serious: No
  Sender: FDA-Public Use
  Company Number: US-TEVA-528867USA

PATIENT
  Sex: Female

DRUGS (1)
  1. COPAXONE [Suspect]
     Active Substance: GLATIRAMER ACETATE
     Indication: MULTIPLE SCLEROSIS
     Dates: start: 20140102, end: 201409

REACTIONS (5)
  - Gait disturbance [Unknown]
  - Tremor [Unknown]
  - Balance disorder [Unknown]
  - Central nervous system lesion [Unknown]
  - Chills [Unknown]

NARRATIVE: CASE EVENT DATE: 2014
